FAERS Safety Report 7118022-9 (Version None)
Quarter: 2010Q4

REPORT INFORMATION
  Report Type: 
  Country: None (occurrence: None)
  Receive Date: 20101118
  Receipt Date: 20101118
  Transmission Date: 20110411
  Serious: Yes (Other)
  Sender: FDA-Public Use
  Company Number: None

PATIENT
  Age: 57 Year
  Sex: Male
  Weight: 86.1834 kg

DRUGS (1)
  1. XALATAN [Suspect]
     Indication: INTRAOCULAR PRESSURE INCREASED
     Dosage: 1 GTT OU QOD TOP
     Route: 061
     Dates: start: 20100115, end: 20101031

REACTIONS (3)
  - CHALAZION [None]
  - HYPERAEMIA [None]
  - UNEVALUABLE EVENT [None]
